FAERS Safety Report 11920057 (Version 1)
Quarter: 2016Q1

REPORT INFORMATION
  Report Type: Spontaneous
  Country: US (occurrence: US)
  Receive Date: 20160115
  Receipt Date: 20160115
  Transmission Date: 20160526
  Serious: Yes (Hospitalization, Other)
  Sender: FDA-Public Use
  Company Number: US-TEVA-625155USA

PATIENT
  Age: 44 Year
  Sex: Female

DRUGS (3)
  1. DIAZEPAM. [Suspect]
     Active Substance: DIAZEPAM
     Route: 065
  2. ALPRAZOLAM. [Suspect]
     Active Substance: ALPRAZOLAM
     Route: 065
  3. HYDROCODONE, PARACETAMOL [Suspect]
     Active Substance: ACETAMINOPHEN\HYDROCODONE
     Route: 065

REACTIONS (5)
  - Respiratory failure [Unknown]
  - Hypotension [Unknown]
  - Toxic encephalopathy [Unknown]
  - Drug abuse [Unknown]
  - Bradycardia [Unknown]
